FAERS Safety Report 8522068-3 (Version None)
Quarter: 2012Q3

REPORT INFORMATION
  Report Type: 
  Country: None (occurrence: None)
  Receive Date: 20120719
  Receipt Date: 20120716
  Transmission Date: 20120928
  Serious: Yes (Hospitalization)
  Sender: FDA-Public Use
  Company Number: US-UCBSA-061793

PATIENT
  Sex: Female

DRUGS (7)
  1. FLAGYL [Concomitant]
     Dates: start: 20090201, end: 20090401
  2. CORTIFOAM [Concomitant]
     Dates: start: 20090701
  3. AZATHIOPRINE [Concomitant]
     Dates: start: 20100101
  4. CERTOLIZUMAB [Suspect]
     Indication: CROHN'S DISEASE
     Route: 058
     Dates: start: 20100506
  5. MESALAMINE [Concomitant]
     Indication: CROHN'S DISEASE
     Dates: start: 20090201, end: 20090401
  6. FLAGYL CREAM [Concomitant]
     Dates: start: 20080701, end: 20090401
  7. CERTOLIZUMAB [Suspect]
     Route: 058
     Dates: start: 20090409, end: 20100422

REACTIONS (1)
  - HERPES ZOSTER [None]
